FAERS Safety Report 5949901-3 (Version None)
Quarter: 2008Q4

REPORT INFORMATION
  Report Type: 
  Country: None (occurrence: None)
  Receive Date: 20081112
  Receipt Date: 20081030
  Transmission Date: 20090506
  Serious: Yes (Other)
  Sender: FDA-Public Use
  Company Number: CA-ELI_LILLY_AND_COMPANY-CA200810007393

PATIENT
  Sex: Male

DRUGS (1)
  1. OLANZAPINE [Suspect]
     Dosage: 10 MG, UNK

REACTIONS (5)
  - AGGRESSION [None]
  - DELUSION [None]
  - HOMICIDAL IDEATION [None]
  - HOMICIDE [None]
  - MENTAL STATUS CHANGES [None]
